FAERS Safety Report 7031568-7 (Version None)
Quarter: 2010Q4

REPORT INFORMATION
  Report Type: 
  Country: None (occurrence: None)
  Receive Date: 20101006
  Receipt Date: 20101006
  Transmission Date: 20110411
  Serious: No
  Sender: FDA-Public Use
  Company Number: None

PATIENT
  Sex: Female

DRUGS (1)
  1. EVISTA [Suspect]
     Indication: NEOPLASM PROPHYLAXIS
     Dosage: 60MG QD PO
     Route: 048
     Dates: start: 20100930, end: 20101001

REACTIONS (1)
  - MYALGIA [None]
